FAERS Safety Report 5396026-4 (Version None)
Quarter: 2007Q3

REPORT INFORMATION
  Report Type: 
  Country: None (occurrence: None)
  Receive Date: 20070724
  Receipt Date: 20070712
  Transmission Date: 20080115
  Serious: Yes (Other)
  Sender: FDA-Public Use
  Company Number: US-PFIZER INC-2007058789

PATIENT
  Sex: Female
  Weight: 81.818 kg

DRUGS (7)
  1. LYRICA [Suspect]
     Indication: SPINAL OSTEOARTHRITIS
  2. LYRICA [Suspect]
     Indication: NEURALGIA
  3. KEPPRA [Concomitant]
  4. MOBIC [Concomitant]
  5. NEXIUM [Concomitant]
  6. FENTANYL TRANSDERMAL SYSTEM [Concomitant]
  7. BENICAR [Concomitant]

REACTIONS (8)
  - BLOOD PRESSURE INCREASED [None]
  - CONFUSIONAL STATE [None]
  - DIZZINESS [None]
  - FEELING ABNORMAL [None]
  - HYPERHIDROSIS [None]
  - HYPOGLYCAEMIA [None]
  - PAIN [None]
  - PALPITATIONS [None]
